FAERS Safety Report 8103244-0 (Version None)
Quarter: 2012Q1

REPORT INFORMATION
  Report Type: 
  Country: None (occurrence: None)
  Receive Date: 20120201
  Receipt Date: 20120124
  Transmission Date: 20120608
  Serious: Yes (Other)
  Sender: FDA-Public Use
  Company Number: JP-JNJFOC-20120105013

PATIENT
  Age: 79 Year
  Sex: Female

DRUGS (6)
  1. RISPERDAL [Suspect]
     Indication: PORIOMANIA
     Route: 048
     Dates: start: 20110421, end: 20110514
  2. RISPERDAL [Suspect]
     Route: 048
     Dates: start: 20110515
  3. RISPERIDONE [Suspect]
     Indication: PORIOMANIA
     Route: 048
     Dates: start: 20110701
  4. RISPERIDONE [Suspect]
     Route: 048
     Dates: start: 20110401, end: 20110510
  5. ARICEPT [Concomitant]
     Route: 048
     Dates: start: 20090101
  6. VALSARTAN/HYDROCHLOROTHIAZIDE [Concomitant]
     Route: 048
     Dates: start: 20110401

REACTIONS (2)
  - LOSS OF CONSCIOUSNESS [None]
  - LIVER DISORDER [None]
